FAERS Safety Report 8673100 (Version 4)
Quarter: 2014Q2

REPORT INFORMATION
  Report Type: Spontaneous
  Country: JP (occurrence: JP)
  Receive Date: 20120719
  Receipt Date: 20140509
  Transmission Date: 20141212
  Serious: Yes (Hospitalization, Other)
  Sender: FDA-Public Use
  Company Number: JP-ROCHE-1086452

PATIENT
  Age: 76 Year
  Sex: Male
  Weight: 68 kg

DRUGS (13)
  1. ACTEMRA [Suspect]
     Indication: RHEUMATOID ARTHRITIS
     Route: 041
     Dates: start: 20120622
  2. PREDNISOLONE [Concomitant]
     Route: 048
     Dates: start: 20110128
  3. ARTIST [Concomitant]
     Route: 048
     Dates: start: 20091106
  4. OMEPRAZOLE [Concomitant]
     Route: 048
     Dates: start: 20091113
  5. D-ALFA [Concomitant]
     Route: 048
     Dates: start: 20030709
  6. AMLODIPINE [Concomitant]
     Route: 048
     Dates: start: 20081218
  7. SENNOSIDE [Concomitant]
     Route: 048
     Dates: start: 20111216
  8. KENTAN [Concomitant]
     Route: 048
     Dates: start: 20100420
  9. REBAMIPIDE [Concomitant]
     Route: 048
     Dates: start: 20100420
  10. SHAKUYAKU-KANZO-TO [Concomitant]
     Route: 048
     Dates: start: 20050704
  11. LASIX [Concomitant]
     Route: 048
     Dates: start: 20030709, end: 20120429
  12. LASIX [Concomitant]
     Route: 048
     Dates: start: 20120430
  13. ZOPICLONE [Concomitant]
     Dosage: DRUG REPORTED AS AMOBANTES
     Route: 048
     Dates: start: 20120705

REACTIONS (3)
  - Henoch-Schonlein purpura [Recovering/Resolving]
  - Pulmonary alveolar haemorrhage [Recovering/Resolving]
  - Pneumonia [Unknown]
